FAERS Safety Report 13828061 (Version 1)
Quarter: 2017Q3

REPORT INFORMATION
  Report Type: Spontaneous
  Country: US (occurrence: US)
  Receive Date: 20170802
  Receipt Date: 20170802
  Transmission Date: 20171127
  Serious: Yes (Hospitalization)
  Sender: FDA-Public Use
  Company Number: None

PATIENT
  Age: 70 Year
  Sex: Male
  Weight: 67.2 kg

DRUGS (2)
  1. LEUPROLIDE ACETATE. [Suspect]
     Active Substance: LEUPROLIDE ACETATE
     Dates: end: 20170622
  2. CASODEX [Suspect]
     Active Substance: BICALUTAMIDE
     Dates: end: 20170708

REACTIONS (2)
  - Pneumonia [None]
  - Influenza like illness [None]

NARRATIVE: CASE EVENT DATE: 20170709
